FAERS Safety Report 17511366 (Version 1)
Quarter: 2020Q1

REPORT INFORMATION
  Report Type: Spontaneous
  Country: US (occurrence: US)
  Receive Date: 20200306
  Receipt Date: 20200306
  Transmission Date: 20200409
  Serious: No
  Sender: FDA-Public Use
  Company Number: US-BAYER-2020-038164

PATIENT
  Age: 69 Year
  Sex: Male

DRUGS (3)
  1. CLARITIN-D NOS [Suspect]
     Active Substance: LORATADINE\PSEUDOEPHEDRINE SULFATE
     Indication: HEADACHE
     Dosage: UNK
     Route: 048
     Dates: start: 2015
  2. CLARITIN-D NOS [Suspect]
     Active Substance: LORATADINE\PSEUDOEPHEDRINE SULFATE
     Indication: PROPHYLAXIS
     Dosage: 1 DF, QD
     Route: 048
     Dates: start: 20200216, end: 20200302
  3. VITAMINS NOS [Concomitant]
     Active Substance: VITAMINS
     Dosage: UNK

REACTIONS (2)
  - Off label use [Unknown]
  - Drug effective for unapproved indication [Unknown]

NARRATIVE: CASE EVENT DATE: 2015
